FAERS Safety Report 5036542-8 (Version None)
Quarter: 2006Q2

REPORT INFORMATION
  Report Type: 
  Country: None (occurrence: None)
  Receive Date: 20060626
  Receipt Date: 20060609
  Transmission Date: 20061013
  Serious: Yes (Hospitalization)
  Sender: FDA-Public Use
  Company Number: GXKR2006IT03272

PATIENT
  Age: 61 Year
  Sex: Female

DRUGS (2)
  1. METFORMIN [Suspect]
     Indication: DIABETES MELLITUS
     Dosage: 3G, QD, UNK
  2. FLUVASTATIN                 (FLUVASTATIN) [Concomitant]

REACTIONS (4)
  - METABOLIC ACIDOSIS [None]
  - OVERDOSE [None]
  - PANCREATITIS ACUTE [None]
  - RENAL FAILURE ACUTE [None]
